FAERS Safety Report 5191974-2 (Version None)
Quarter: 2006Q4

REPORT INFORMATION
  Report Type: 
  Country: None (occurrence: None)
  Receive Date: 20061227
  Receipt Date: 20060823
  Transmission Date: 20070319
  Serious: Yes (Hospitalization)
  Sender: FDA-Public Use
  Company Number: HQWYE924624AUG06

PATIENT
  Sex: Male
  Weight: 43 kg

DRUGS (4)
  1. ENBREL [Suspect]
     Indication: RHEUMATOID ARTHRITIS
     Route: 058
     Dates: start: 20060407, end: 20060818
  2. ZESTRIL [Concomitant]
     Indication: HYPERTENSION
     Route: 048
     Dates: end: 20060828
  3. BASEN [Concomitant]
     Indication: DIABETES MELLITUS
     Route: 048
     Dates: end: 20060828
  4. RHEUMATREX [Concomitant]
     Indication: RHEUMATOID ARTHRITIS
     Route: 048
     Dates: start: 20030708, end: 20060818

REACTIONS (5)
  - ALVEOLITIS ALLERGIC [None]
  - ANOREXIA [None]
  - BODY TEMPERATURE INCREASED [None]
  - CHILLS [None]
  - HYPOXIA [None]
